FAERS Safety Report 19450574 (Version 2)
Quarter: 2021Q2

REPORT INFORMATION
  Report Type: Spontaneous
  Country: ID (occurrence: ID)
  Receive Date: 20210622
  Receipt Date: 20210624
  Transmission Date: 20210717
  Serious: Yes (Death, Life-Threatening, Hospitalization)
  Sender: FDA-Public Use
  Company Number: ID-JNJFOC-20210635929

PATIENT
  Age: 59 Year
  Sex: Female

DRUGS (1)
  1. DARZALEX [Suspect]
     Active Substance: DARATUMUMAB
     Indication: AMYLOIDOSIS
     Route: 041
     Dates: start: 20201105, end: 202012

REACTIONS (5)
  - Cardiac amyloidosis [Unknown]
  - Off label use [Unknown]
  - Death [Fatal]
  - Product use in unapproved indication [Unknown]
  - Anaemia [Unknown]

NARRATIVE: CASE EVENT DATE: 202103
